FAERS Safety Report 9714197 (Version 2)
Quarter: 2015Q3

REPORT INFORMATION
  Report Type: Spontaneous
  Country: US (occurrence: US)
  Receive Date: 20131126
  Receipt Date: 20150803
  Transmission Date: 20151125
  Serious: No
  Sender: FDA-Public Use
  Company Number: US-GILEAD-2008-0019271

PATIENT
  Age: 64 Year
  Sex: Female
  Weight: 117.93 kg

DRUGS (13)
  1. LEVOXYL [Concomitant]
     Active Substance: LEVOTHYROXINE SODIUM
  2. COQ10 [Concomitant]
     Active Substance: UBIDECARENONE
  3. ALEVE [Concomitant]
     Active Substance: NAPROXEN SODIUM
  4. MULTIVITAMIN [Concomitant]
     Active Substance: VITAMINS
  5. LASIX [Concomitant]
     Active Substance: FUROSEMIDE
  6. LETAIRIS [Suspect]
     Active Substance: AMBRISENTAN
     Indication: PULMONARY ARTERIAL HYPERTENSION
     Route: 048
     Dates: start: 20081113
  7. ADVAIR 250-50 [Concomitant]
  8. PROAIR HFA [Concomitant]
     Active Substance: ALBUTEROL SULFATE
  9. VITAMIN E [Concomitant]
     Active Substance: .ALPHA.-TOCOPHEROL
  10. OXYGEN. [Concomitant]
     Active Substance: OXYGEN
  11. CALCIUM [Concomitant]
     Active Substance: CALCIUM
  12. FISH OIL [Concomitant]
     Active Substance: FISH OIL
  13. REVATIO [Concomitant]
     Active Substance: SILDENAFIL CITRATE

REACTIONS (2)
  - Oedema peripheral [None]
  - Gait disturbance [None]
